FAERS Safety Report 17488356 (Version 1)
Quarter: 2020Q1

REPORT INFORMATION
  Report Type: Spontaneous
  Country: US (occurrence: US)
  Receive Date: 20200302
  Receipt Date: 20200302
  Transmission Date: 20200409
  Serious: Yes (Death)
  Sender: FDA-Public Use
  Company Number: None

PATIENT
  Age: 75 Year
  Sex: Male
  Weight: 113.4 kg

DRUGS (1)
  1. DEFINITY [Suspect]
     Active Substance: PERFLUTREN
     Route: 042
     Dates: start: 20191114, end: 20191114

REACTIONS (14)
  - Dyspnoea [None]
  - Eye oedema [None]
  - Flushing [None]
  - Rash pruritic [None]
  - Aggression [None]
  - Peritonitis bacterial [None]
  - End-tidal CO2 decreased [None]
  - Seizure like phenomena [None]
  - Pulse absent [None]
  - Apnoeic attack [None]
  - Bundle branch block left [None]
  - Hyperhidrosis [None]
  - Swelling face [None]
  - Cardiac arrest [None]

NARRATIVE: CASE EVENT DATE: 20191114
